FAERS Safety Report 8430765-3 (Version None)
Quarter: 2012Q2

REPORT INFORMATION
  Report Type: 
  Country: None (occurrence: None)
  Receive Date: 20120612
  Receipt Date: 20120531
  Transmission Date: 20120825
  Serious: Yes (Other)
  Sender: FDA-Public Use
  Company Number: US-ELI_LILLY_AND_COMPANY-US201112000660

PATIENT
  Sex: Female

DRUGS (13)
  1. NORVASC [Concomitant]
     Indication: BLOOD PRESSURE
     Dosage: UNK, QD
  2. FORTEO [Suspect]
     Indication: OSTEOPOROSIS
     Dosage: 20 UG, QD
     Dates: start: 20110901
  3. MIRAPEX [Concomitant]
     Indication: RESTLESS LEGS SYNDROME
     Dosage: UNK, QD
  4. NEURONTIN [Concomitant]
     Indication: PAIN
     Dosage: UNK, QD
  5. AMBIEN [Concomitant]
     Dosage: UNK, EACH EVENING
  6. FORTEO [Suspect]
     Dosage: 20 UG, QD
  7. LEVOTHYROXINE SODIUM [Concomitant]
     Indication: BLOOD PRESSURE
     Dosage: UNK UNK, QD
  8. LISINOPRIL [Concomitant]
     Indication: BLOOD PRESSURE
     Dosage: UNK, QD
  9. FORTEO [Suspect]
     Dosage: 20 UG, QD
  10. SALAGEN [Concomitant]
     Indication: SJOGREN'S SYNDROME
     Dosage: UNK, QD
  11. NASALCROM [Concomitant]
     Indication: ALLERGY PROPHYLAXIS
     Dosage: UNK, QD
  12. CELEXA [Concomitant]
     Indication: PAIN
     Dosage: UNK, QD
  13. CLONIDINE [Concomitant]
     Indication: BLOOD PRESSURE
     Dosage: UNK, QD

REACTIONS (11)
  - MUSCLE DISORDER [None]
  - INJECTION SITE ERYTHEMA [None]
  - INJECTION SITE HAEMATOMA [None]
  - LIMB DISCOMFORT [None]
  - ERYTHEMA [None]
  - SKIN CANCER [None]
  - ASTHENIA [None]
  - RASH MACULAR [None]
  - BREAST ENLARGEMENT [None]
  - CONTUSION [None]
  - MASS [None]
